FAERS Safety Report 9518408 (Version 1)
Quarter: 2013Q3

REPORT INFORMATION
  Report Type: Spontaneous
  Country: US (occurrence: None)
  Receive Date: 20130910
  Receipt Date: 20130910
  Transmission Date: 20140515
  Serious: Yes (Other)
  Sender: FDA-Public Use
  Company Number: None

PATIENT
  Age: 24 Year
  Sex: Male
  Weight: 88.45 kg

DRUGS (1)
  1. TRAZODONE [Suspect]
     Indication: SLEEP DISORDER THERAPY
     Route: 048
     Dates: end: 20130827

REACTIONS (1)
  - Priapism [None]
